FAERS Safety Report 10932928 (Version 1)
Quarter: 2015Q1

REPORT INFORMATION
  Report Type: Spontaneous
  Country: ZA (occurrence: ZA)
  Receive Date: 20150320
  Receipt Date: 20150320
  Transmission Date: 20150721
  Serious: Yes (Hospitalization)
  Sender: FDA-Public Use
  Company Number: ZA-PFIZER INC-2015091955

PATIENT
  Age: 73 Year
  Sex: Female

DRUGS (3)
  1. ASPAVOR [Suspect]
     Active Substance: ATORVASTATIN
     Indication: BLOOD CHOLESTEROL
     Dosage: UNK, DAILY
     Route: 048
     Dates: start: 20121219
  2. ALTOSEC /00661201/ [Concomitant]
     Indication: GASTRIC ULCER
     Dosage: UNK, DAILY
     Route: 048
     Dates: start: 20130116
  3. PREXUM PLUS /01421201/ [Concomitant]
     Indication: HYPERTENSION
     Dosage: 4/12.5, DAILY
     Route: 048
     Dates: start: 20121219

REACTIONS (1)
  - Back disorder [Recovering/Resolving]

NARRATIVE: CASE EVENT DATE: 20150205
